FAERS Safety Report 5117121-0 (Version None)
Quarter: 2006Q3

REPORT INFORMATION
  Report Type: 
  Country: None (occurrence: None)
  Receive Date: 20060929
  Receipt Date: 20060920
  Transmission Date: 20061208
  Serious: Yes (Hospitalization)
  Sender: FDA-Public Use
  Company Number: US-ABBOTT-06P-163-0344469-00

PATIENT
  Age: 41 Year
  Sex: Female

DRUGS (3)
  1. BIAXIN [Suspect]
     Indication: DRUG USE FOR UNKNOWN INDICATION
     Dates: start: 20040801
  2. LEXAPRO FILM-COATED TABLETS [Interacting]
     Indication: POSTPARTUM DEPRESSION
     Route: 048
     Dates: start: 20030101, end: 20040801
  3. STRATTERA [Interacting]
     Indication: DRUG USE FOR UNKNOWN INDICATION
     Dates: start: 20020101

REACTIONS (3)
  - DRUG INTERACTION [None]
  - HYPOMANIA [None]
  - PSYCHOTIC DISORDER [None]
